FAERS Safety Report 8482799 (Version 5)
Quarter: 2012Q4

REPORT INFORMATION
  Report Type: 
  Country: US (occurrence: US)
  Receive Date: 20120329
  Receipt Date: 20120919
  Transmission Date: 20130627
  Serious: Yes (Hospitalization, Disabling, Other)
  Sender: FDA-Public Use
  Company Number: US-009507513-1203USA03429

PATIENT

DRUGS (14)
  1. FOSAMAX [Suspect]
     Indication: OSTEOPOROSIS
     Dosage: 10 mg, qd
     Route: 048
     Dates: start: 199707, end: 201003
  2. FOSAMAX [Suspect]
     Dosage: 70 mg, qw
     Route: 048
  3. FOSAMAX PLUS D [Suspect]
     Indication: OSTEOPOROSIS
     Route: 048
  4. FOSAMAX [Suspect]
     Indication: OSTEOPOROSIS
     Route: 048
  5. CALCIUM (UNSPECIFIED) [Concomitant]
     Indication: OSTEOPOROSIS
  6. VITAMIN D (UNSPECIFIED) [Concomitant]
     Indication: OSTEOPOROSIS
  7. MK-9359 [Concomitant]
     Indication: HYPERTENSION
     Dosage: 50-100
     Route: 048
     Dates: start: 19950410
  8. MK-0152 [Concomitant]
     Indication: HYPERTENSION
     Dosage: 25 mg, qd
     Route: 048
  9. SIMVASTATIN [Concomitant]
     Indication: HYPERCHOLESTEROLAEMIA
     Dosage: 40 mg, UNK
     Route: 048
  10. ELAVIL (MADE BY MERCK, MARKETED BY ZENECA) [Concomitant]
     Dosage: 10 mg, UNK
     Route: 048
     Dates: start: 19970610
  11. IBUPROFEN [Concomitant]
     Indication: MYOFASCIAL PAIN SYNDROME
     Dosage: UNK
     Dates: start: 1977
  12. IBUPROFEN [Concomitant]
     Indication: FIBROMYALGIA
  13. IBUPROFEN [Concomitant]
     Indication: ARTHRALGIA
  14. IBUPROFEN [Concomitant]
     Indication: MUSCULOSKELETAL PAIN

REACTIONS (36)
  - Stress fracture [Not Recovered/Not Resolved]
  - Osteoporosis [Not Recovered/Not Resolved]
  - Femur fracture [Not Recovered/Not Resolved]
  - Low turnover osteopathy [Not Recovered/Not Resolved]
  - Complex regional pain syndrome [Not Recovered/Not Resolved]
  - Osteoarthritis [Unknown]
  - Arthropathy [Unknown]
  - Accident at work [Not Recovered/Not Resolved]
  - Tendonitis [Unknown]
  - Cataract operation [Unknown]
  - Iridectomy [Unknown]
  - Femur fracture [Not Recovered/Not Resolved]
  - Metatarsalgia [Unknown]
  - Gastrointestinal disorder [Unknown]
  - Cardiac disorder [Unknown]
  - Corneal abrasion [Unknown]
  - Postmenopausal haemorrhage [Unknown]
  - Corneal erosion [Unknown]
  - Upper respiratory tract infection [Unknown]
  - Spinal osteoarthritis [Unknown]
  - Dislocation of vertebra [Unknown]
  - Exostosis [Unknown]
  - Osteoarthritis [Unknown]
  - Knee deformity [Unknown]
  - Poor quality sleep [Unknown]
  - Osteoarthritis [Unknown]
  - Depressed mood [Unknown]
  - Exostosis [Unknown]
  - Somnolence [Unknown]
  - Cataract [Unknown]
  - Blepharitis [Unknown]
  - Dry eye [Unknown]
  - Upper respiratory tract infection [Unknown]
  - Drug ineffective [Unknown]
  - Angioedema [Unknown]
  - Urticaria [Unknown]
